FAERS Safety Report 24637615 (Version 1)
Quarter: 2024Q4

REPORT INFORMATION
  Report Type: Spontaneous
  Country: US (occurrence: US)
  Receive Date: 20241119
  Receipt Date: 20241119
  Transmission Date: 20250114
  Serious: No
  Sender: SEPTODONT
  Company Number: US-SEPTODONT-2023018228

PATIENT
  Sex: Male

DRUGS (2)
  1. ARTICAINE HYDROCHLORIDE\EPINEPHRINE BITARTRATE [Suspect]
     Active Substance: ARTICAINE HYDROCHLORIDE\EPINEPHRINE BITARTRATE
     Indication: Dental local anaesthesia
     Route: 004
  2. Lidocaine cartridge [Concomitant]
     Indication: Dental local anaesthesia

REACTIONS (2)
  - Product container seal issue [Unknown]
  - Product use complaint [Unknown]
